FAERS Safety Report 11327711 (Version 2)
Quarter: 2015Q3

REPORT INFORMATION
  Report Type: Report from Study
  Country: GB (occurrence: GB)
  Receive Date: 20150731
  Receipt Date: 20150811
  Transmission Date: 20151125
  Serious: Yes (Death)
  Sender: FDA-Public Use
  Company Number: GB-009507513-1507GBR014208

PATIENT
  Age: 46 Year
  Sex: Female

DRUGS (1)
  1. PEMBROLIZUMAB. [Suspect]
     Active Substance: PEMBROLIZUMAB
     Indication: METASTATIC MALIGNANT MELANOMA
     Dosage: UNK
     Route: 042
     Dates: start: 20141119, end: 20141231

REACTIONS (1)
  - Death [Fatal]

NARRATIVE: CASE EVENT DATE: 20150213
